FAERS Safety Report 18532386 (Version 1)
Quarter: 2020Q4

REPORT INFORMATION
  Report Type: Spontaneous
  Country: GB (occurrence: GB)
  Receive Date: 20201123
  Receipt Date: 20201123
  Transmission Date: 20210114
  Serious: Yes (Other)
  Sender: FDA-Public Use
  Company Number: GB-TEVA-2020-GB-1850673

PATIENT
  Age: 63 Year
  Sex: Male
  Weight: 99 kg

DRUGS (10)
  1. METHOCARBAMOL. [Concomitant]
     Active Substance: METHOCARBAMOL
     Dosage: 1-2 TABLETS UP TO  FOUR TIMES DAILY IF NEEDED,UNIT DOSE 750MG
     Dates: start: 20200908
  2. VENTOLIN [Concomitant]
     Active Substance: ALBUTEROL SULFATE
     Dosage: TWO PUFFS UP TO FOUR TIMES A DAY AS NEEDED,UNIT DOSE 2DF
     Dates: start: 20200805
  3. DIAZEPAM. [Concomitant]
     Active Substance: DIAZEPAM
     Dosage: ONE UPTO THREE TIMES A DAY AS NEEDED FOR SHORT TERM USE, THIS IS ADDICTIVE AND WILL NOT BE PRESCRIBE
     Dates: start: 20200929
  4. MATRIFEN [Concomitant]
     Active Substance: FENTANYL
     Dosage: APPLY ONE EVERY 3 DAYS. 50MICROGRAM/HOUR.UNIT DOSE 1DF
     Dates: start: 20200902, end: 20200908
  5. MATRIFEN [Concomitant]
     Active Substance: FENTANYL
     Dosage: APPLY ONE EVERY 3 DAYS. 25MICROGRAMS/HOUR.UNIT DOSE 1DF
     Dates: start: 20200908
  6. DOXYCYCLINE. [Concomitant]
     Active Substance: DOXYCYCLINE
     Dosage: TWO IMMEDIATELY THEN ONE DAILY  AVOIDING SUNSHINE IF POSSIBLE, UNIT DOSE:100MG
     Dates: start: 20201013
  7. GABAPENTIN. [Concomitant]
     Active Substance: GABAPENTIN
     Dosage: 900MG
     Dates: start: 20200908
  8. DIAZEPAM. [Concomitant]
     Active Substance: DIAZEPAM
     Dosage: ONE UPTO THREE TIMES A DAY AS NEEDED FOR SHORT TERM USE, THIS IS ADDICTIVE AND WILL NOT BE PRESCRIBE
     Dates: start: 20200929
  9. TRIMETHOPRIM. [Suspect]
     Active Substance: TRIMETHOPRIM
     Indication: BACK PAIN
     Dosage: 200MG
     Route: 048
  10. NITROFURANTOIN. [Concomitant]
     Active Substance: NITROFURANTOIN
     Dosage: 200MG
     Dates: start: 20200828

REACTIONS (3)
  - Hallucination [Unknown]
  - Nightmare [Unknown]
  - Drug hypersensitivity [Recovered/Resolved]

NARRATIVE: CASE EVENT DATE: 20201009
